FAERS Safety Report 8862072 (Version 2)
Quarter: 2012Q4

REPORT INFORMATION
  Report Type: 
  Country: BR (occurrence: BR)
  Receive Date: 20121026
  Receipt Date: 20121212
  Transmission Date: 20130627
  Serious: Yes (Other)
  Sender: FDA-Public Use
  Company Number: BR-ELI_LILLY_AND_COMPANY-BR201210005158

PATIENT
  Sex: Female

DRUGS (4)
  1. HUMULIN REGULAR [Suspect]
     Indication: DIABETES MELLITUS
     Dosage: 78 IU, each morning
     Route: 058
     Dates: start: 2004
  2. HUMULIN REGULAR [Suspect]
     Dosage: 80 IU, each evening
     Route: 058
     Dates: start: 2004
  3. APIDRA [Concomitant]
     Dosage: 10 IU, qd
     Route: 065
  4. NOVOLIN N [Concomitant]
     Dosage: UNK, unknown
     Route: 065

REACTIONS (1)
  - Cataract [Unknown]
